FAERS Safety Report 4964605-1 (Version None)
Quarter: 2006Q1

REPORT INFORMATION
  Report Type: 
  Country: None (occurrence: None)
  Receive Date: 20060331
  Receipt Date: 20060316
  Transmission Date: 20060701
  Serious: Yes (Other)
  Sender: FDA-Public Use
  Company Number: CA200511000935

PATIENT
  Age: 58 Year
  Sex: Female

DRUGS (4)
  1. ZYPREXA [Suspect]
     Indication: AGITATION
     Dosage: DAILY (1/D), ORAL
     Route: 048
     Dates: start: 20020301, end: 20020801
  2. CITALOPRAM (CITALOPRAM) [Concomitant]
  3. CLONAZEPAM [Concomitant]
  4. LEVOTHYROXINE SODIUM [Concomitant]

REACTIONS (5)
  - DIABETES MELLITUS [None]
  - HYPOTHYROIDISM [None]
  - PAPILLARY THYROID CANCER [None]
  - STRESS [None]
  - THYROID ADENOMA [None]
